FAERS Safety Report 23591447 (Version 1)
Quarter: 2024Q1

REPORT INFORMATION
  Report Type: Spontaneous
  Country: CN (occurrence: CN)
  Receive Date: 20240304
  Receipt Date: 20240304
  Transmission Date: 20240410
  Serious: Yes (Other)
  Sender: FDA-Public Use
  Company Number: CN-ALCON LABORATORIES-ALC2024CN001252

PATIENT
  Age: 25 Year
  Sex: Female
  Weight: 52 kg

DRUGS (1)
  1. FLUORESCITE [Suspect]
     Active Substance: FLUORESCEIN SODIUM
     Indication: Angiogram
     Dosage: 0.01 G, ONCE/SINGLE
     Route: 042
     Dates: start: 20240222, end: 20240222

REACTIONS (2)
  - Muscular weakness [Recovered/Resolved]
  - Dizziness [Recovered/Resolved]

NARRATIVE: CASE EVENT DATE: 20240222
